FAERS Safety Report 19180592 (Version 3)
Quarter: 2021Q2

REPORT INFORMATION
  Report Type: Spontaneous
  Country: MX (occurrence: MX)
  Receive Date: 20210426
  Receipt Date: 20210513
  Transmission Date: 20210717
  Serious: Yes (Other)
  Sender: FDA-Public Use
  Company Number: MX-UCBSA-2021018376

PATIENT
  Age: 74 Year
  Sex: Female
  Weight: 45 kg

DRUGS (6)
  1. CARBIDOPA AND LEVODOPA [Concomitant]
     Active Substance: CARBIDOPA\LEVODOPA
     Indication: PARKINSON^S DISEASE
     Dosage: 1 TABLET IN MORNING AND HALF TABLET IN THE AFTERNOON
  2. NUBRENZA [Suspect]
     Active Substance: ROTIGOTINE
     Indication: PARKINSON^S DISEASE
     Dosage: UNK
     Route: 062
  3. NUBRENZA [Suspect]
     Active Substance: ROTIGOTINE
     Dosage: 4 MILLIGRAM, ONCE DAILY (QD)
     Route: 062
     Dates: start: 20210412, end: 20210415
  4. NUBRENZA [Suspect]
     Active Substance: ROTIGOTINE
     Dosage: 2 MILLIGRAM, ONCE DAILY (QD)
     Route: 062
     Dates: start: 20210418, end: 202104
  5. NUBRENZA [Suspect]
     Active Substance: ROTIGOTINE
     Dosage: 0.5 DOSAGE FORM, ONCE DAILY (QD)
     Route: 062
     Dates: end: 202104
  6. CARBIDOPA AND LEVODOPA [Concomitant]
     Active Substance: CARBIDOPA\LEVODOPA
     Dosage: 1 TABLET IN THE MORNING AND 0.5 TABLET IN THE AFTERNOON
     Route: 048

REACTIONS (11)
  - Immobile [Unknown]
  - Limb discomfort [Unknown]
  - Speech disorder [Recovered/Resolved]
  - Wrong technique in product usage process [Unknown]
  - Musculoskeletal stiffness [Recovering/Resolving]
  - Myalgia [Unknown]
  - Asthenia [Unknown]
  - Gait disturbance [Recovered/Resolved]
  - Bone pain [Recovering/Resolving]
  - Dysphagia [Recovering/Resolving]
  - Fatigue [Unknown]

NARRATIVE: CASE EVENT DATE: 20210418
